FAERS Safety Report 7515001-4 (Version None)
Quarter: 2011Q2

REPORT INFORMATION
  Report Type: 
  Country: None (occurrence: None)
  Receive Date: 20110601
  Receipt Date: 20110519
  Transmission Date: 20111010
  Serious: Yes (Other)
  Sender: FDA-Public Use
  Company Number: PHFR2011GB03159

PATIENT
  Sex: Male

DRUGS (3)
  1. CLOZARIL [Suspect]
     Dosage: 550 MG, UNK
  2. CLOZARIL [Suspect]
     Indication: SCHIZOPHRENIA
     Route: 048
     Dates: start: 20081219
  3. AMOXIL [Concomitant]

REACTIONS (6)
  - SOMNOLENCE [None]
  - WHEEZING [None]
  - LOWER RESPIRATORY TRACT INFECTION [None]
  - FLUID INTAKE REDUCED [None]
  - FATIGUE [None]
  - CONSTIPATION [None]
